FAERS Safety Report 7529201-0 (Version None)
Quarter: 2011Q2

REPORT INFORMATION
  Report Type: 
  Country: None (occurrence: None)
  Receive Date: 20110607
  Receipt Date: 20110531
  Transmission Date: 20111010
  Serious: Yes (Hospitalization)
  Sender: FDA-Public Use
  Company Number: US-ROCHE-702910

PATIENT
  Sex: Female

DRUGS (14)
  1. HYDROCODONE BITARTRATE [Concomitant]
     Dates: start: 20080424
  2. NITROGLYCERIN [Concomitant]
  3. COLACE [Concomitant]
     Dates: start: 20070123
  4. XANAX [Concomitant]
     Dates: start: 20070503
  5. NEURONTIN [Concomitant]
     Dates: start: 20091211
  6. METOPROLOL SUCCINATE [Concomitant]
     Dates: start: 20071215
  7. NEORAL [Suspect]
     Route: 048
     Dates: start: 20070120
  8. LISINOPRIL [Concomitant]
     Dates: start: 20081124
  9. PRAVASTATIN [Concomitant]
     Dates: start: 20081225
  10. PAMELOR [Concomitant]
     Dates: start: 20091211
  11. PREDNISONE [Suspect]
     Route: 048
     Dates: start: 20070326
  12. PEPCID [Concomitant]
     Dates: start: 20080206
  13. MYCOPHENOLATE MEFETIL [Suspect]
     Dosage: THERAPY INTERRUPTED
     Route: 048
     Dates: start: 20070120
  14. OXYCONTIN [Concomitant]
     Dates: start: 20091211

REACTIONS (3)
  - URINARY TRACT INFECTION [None]
  - TRANSPLANT REJECTION [None]
  - CHEST PAIN [None]
